FAERS Safety Report 5849111-4 (Version None)
Quarter: 2008Q3

REPORT INFORMATION
  Report Type: 
  Country: None (occurrence: None)
  Receive Date: 20080815
  Receipt Date: 20080801
  Transmission Date: 20090109
  Serious: Yes (Death)
  Sender: FDA-Public Use
  Company Number: DSJ-2008-09329

PATIENT
  Age: 51 Year
  Sex: Male

DRUGS (3)
  1. OLMESARTAN MEDOXOMIL [Suspect]
     Indication: BLOOD PRESSURE INADEQUATELY CONTROLLED
     Dosage: 20 MG, 40 MG, PER ORAL
     Route: 048
     Dates: start: 20080713, end: 20080715
  2. SEPAMIT (NIFEDIPINE) (NIFEDIPINE) [Concomitant]
  3. NITRODERM (GLYCERYL TRINITRATE)(GLYCERYL TRINITRATE) [Concomitant]

REACTIONS (2)
  - DIARRHOEA [None]
  - MYOCARDIAL INFARCTION [None]
